FAERS Safety Report 8547582-6 (Version None)
Quarter: 2012Q3

REPORT INFORMATION
  Report Type: 
  Country: None (occurrence: None)
  Receive Date: 20120727
  Receipt Date: 20120404
  Transmission Date: 20120928
  Serious: No
  Sender: FDA-Public Use
  Company Number: US-ASTRAZENECA-2012SE22529

PATIENT
  Sex: Female

DRUGS (6)
  1. SEROQUEL XR [Suspect]
     Indication: MAJOR DEPRESSION
     Route: 048
  2. CYMBALTA [Concomitant]
  3. SEROQUEL XR [Suspect]
     Indication: INSOMNIA
     Route: 048
  4. KLONOPIN [Concomitant]
  5. SEROQUEL XR [Suspect]
     Indication: SLEEP APNOEA SYNDROME
     Route: 048
  6. MORPHINE SULFATE [Concomitant]

REACTIONS (4)
  - INAPPROPRIATE SCHEDULE OF DRUG ADMINISTRATION [None]
  - FEELING JITTERY [None]
  - NERVOUSNESS [None]
  - THERAPEUTIC RESPONSE UNEXPECTED [None]
